FAERS Safety Report 22322540 (Version 1)
Quarter: 2023Q2

REPORT INFORMATION
  Report Type: Spontaneous
  Country: US (occurrence: US)
  Receive Date: 20230516
  Receipt Date: 20230516
  Transmission Date: 20230721
  Serious: No
  Sender: FDA-Public Use
  Company Number: AXS2022-212

PATIENT
  Age: 26 Year
  Sex: Female
  Weight: 79.45 kg

DRUGS (4)
  1. SUNOSI [Suspect]
     Active Substance: SOLRIAMFETOL
     Indication: Product used for unknown indication
     Dosage: UNK
  2. XYWAV [Suspect]
     Active Substance: CALCIUM OXYBATE\MAGNESIUM OXYBATE\POTASSIUM OXYBATE\SODIUM OXYBATE
     Indication: Cataplexy
     Dosage: 2.25 G TWICE NIGHTLY FOR 1 WEEK, THEN TITRATING UP TO 3 G TWICE NIGHTLY FOR 3 WEEKS
  3. Medroxyprogesteron (PROVERA) [Concomitant]
     Indication: Product used for unknown indication
     Dosage: 10 MG
     Route: 048
  4. RITALIN [Concomitant]
     Active Substance: METHYLPHENIDATE HYDROCHLORIDE
     Indication: Somnolence
     Dosage: 5MG, TAKE 1 TAB PO BID PRN

REACTIONS (3)
  - Anxiety [Unknown]
  - Drug ineffective [Unknown]
  - Off label use [Unknown]
